FAERS Safety Report 11879317 (Version 2)
Quarter: 2017Q2

REPORT INFORMATION
  Report Type: Spontaneous
  Country: US (occurrence: US)
  Receive Date: 20151230
  Receipt Date: 20170404
  Transmission Date: 20170829
  Serious: No
  Sender: FDA-Public Use
  Company Number: US-AMGEN-USASP2015137886

PATIENT
  Age: 60 Year
  Sex: Female

DRUGS (1)
  1. ENBREL [Suspect]
     Active Substance: ETANERCEPT
     Indication: RHEUMATOID ARTHRITIS
     Dosage: 50 MG, QWK
     Route: 065

REACTIONS (2)
  - Pain [Unknown]
  - Drug dose omission [Unknown]
